FAERS Safety Report 20923801 (Version 1)
Quarter: 2022Q2

REPORT INFORMATION
  Report Type: Spontaneous
  Country: IT (occurrence: IT)
  Receive Date: 20220607
  Receipt Date: 20220607
  Transmission Date: 20220720
  Serious: Yes (Death, Other)
  Sender: FDA-Public Use
  Company Number: IT-BRISTOL-MYERS SQUIBB COMPANY-2022-052497

PATIENT

DRUGS (1)
  1. LUSPATERCEPT [Suspect]
     Active Substance: LUSPATERCEPT
     Indication: Myelodysplastic syndrome
     Dosage: DOSE : UNAV;     FREQ : UNAV
     Route: 058

REACTIONS (1)
  - Death [Fatal]
